FAERS Safety Report 15735533 (Version 2)
Quarter: 2019Q4

REPORT INFORMATION
  Report Type: Spontaneous
  Country: NZ (occurrence: NZ)
  Receive Date: 20181218
  Receipt Date: 20191227
  Transmission Date: 20200122
  Serious: No
  Sender: FDA-Public Use
  Company Number: SG-ALKEM LABORATORIES LIMITED-SG-ALKEM-2018-07367

PATIENT
  Sex: Female

DRUGS (1)
  1. METFORMIN HYDROCHLORIDE. [Suspect]
     Active Substance: METFORMIN HYDROCHLORIDE
     Indication: GESTATIONAL DIABETES
     Dosage: UNK
     Route: 065

REACTIONS (1)
  - Exposure during pregnancy [Unknown]
